FAERS Safety Report 5069354-X (Version None)
Quarter: 2006Q3

REPORT INFORMATION
  Report Type: 
  Country: None (occurrence: None)
  Receive Date: 20060802
  Receipt Date: 20060802
  Transmission Date: 20061208
  Serious: Yes (Death)
  Sender: FDA-Public Use
  Company Number: None

PATIENT
  Sex: Male
  Weight: 86.1834 kg

DRUGS (5)
  1. OLANZAPINE [Suspect]
     Indication: ANXIETY
     Dosage: 20 MG  EVENING  ORAL
     Route: 048
     Dates: start: 19990101, end: 20050101
  2. CARBAMAZEPINE [Concomitant]
  3. LORAZEPAM [Concomitant]
  4. DEXTROMETHORPHAN [Concomitant]
  5. DOXYLAMINE [Concomitant]

REACTIONS (1)
  - DRUG TOXICITY [None]
